FAERS Safety Report 9622969 (Version 1)
Quarter: 2013Q4

REPORT INFORMATION
  Report Type: Spontaneous
  Country: AU (occurrence: None)
  Receive Date: 20131010
  Receipt Date: 20131010
  Transmission Date: 20140711
  Serious: Yes (Hospitalization)
  Sender: FDA-Public Use
  Company Number: 1929941

PATIENT
  Age: 74 Year
  Sex: Female

DRUGS (8)
  1. CALCIUM FOLINATE [Suspect]
     Indication: COLON CANCER
     Dosage: 590 MG, 1 WEEK
     Route: 042
     Dates: start: 20130319, end: 20130917
  2. FLUOROURACIL [Suspect]
     Indication: COLON CANCER
     Route: 040
     Dates: start: 20130319, end: 20130917
  3. FLUOROURACIL [Suspect]
     Indication: COLON CANCER
     Route: 040
     Dates: start: 20130319, end: 20130917
  4. BEVACIZUMAB [Suspect]
     Indication: COLON CANCER
     Dosage: 255 MG, 1 WEEK, IV
     Route: 042
     Dates: start: 20130319, end: 20130917
  5. NIFEDIPINE [Concomitant]
  6. OMEPRAZOLE [Concomitant]
  7. ONDANSETRON [Concomitant]
  8. PARACETAMOL [Concomitant]

REACTIONS (3)
  - Confusional state [None]
  - Pyrexia [None]
  - Loss of consciousness [None]
